FAERS Safety Report 20053246 (Version 1)
Quarter: 2021Q4

REPORT INFORMATION
  Report Type: Spontaneous
  Country: US (occurrence: US)
  Receive Date: 20211110
  Receipt Date: 20211110
  Transmission Date: 20220303
  Serious: Yes (Other)
  Sender: FDA-Public Use
  Company Number: US-AMGEN-USASP2021172272

PATIENT
  Age: 17 Year
  Sex: Female

DRUGS (6)
  1. BLINATUMOMAB [Suspect]
     Active Substance: BLINATUMOMAB
     Indication: Acute lymphocytic leukaemia
     Dosage: UNK
     Route: 065
  2. PONATINIB [Concomitant]
     Active Substance: PONATINIB
     Dosage: 45 MILLIGRAM, QD FOR 14 DAYS
  3. PONATINIB [Concomitant]
     Active Substance: PONATINIB
     Dosage: 30 MILLIGRAM, BID
  4. CYCLOPHOSPHAMIDE [Concomitant]
     Active Substance: CYCLOPHOSPHAMIDE
  5. MERCAPTOPURINE [Concomitant]
     Active Substance: MERCAPTOPURINE
  6. RUXOLITINIB [Concomitant]
     Active Substance: RUXOLITINIB

REACTIONS (2)
  - Chronic graft versus host disease oral [Unknown]
  - Chronic graft versus host disease [Unknown]

NARRATIVE: CASE EVENT DATE: 20190101
